FAERS Safety Report 8915903 (Version 2)
Quarter: 2014Q2

REPORT INFORMATION
  Report Type: Spontaneous
  Country: US (occurrence: US)
  Receive Date: 20121119
  Receipt Date: 20131024
  Transmission Date: 20141212
  Serious: No
  Sender: FDA-Public Use
  Company Number: US-PFIZER INC-2012288261

PATIENT
  Age: 51 Year
  Sex: Female
  Weight: 86.2 kg

DRUGS (3)
  1. DEPO-MEDROL [Suspect]
     Indication: SWELLING
     Dosage: UNK
     Dates: start: 20121030
  2. DEPO-MEDROL [Suspect]
     Indication: PAIN
  3. IBUPROFEN [Concomitant]
     Dosage: 600 MG, 1X/DAY

REACTIONS (1)
  - Hypersensitivity [Unknown]
